FAERS Safety Report 15335884 (Version 1)
Quarter: 2018Q3

REPORT INFORMATION
  Report Type: Report from Study
  Country: US (occurrence: US)
  Receive Date: 20180830
  Receipt Date: 20180830
  Transmission Date: 20181010
  Serious: Yes (Hospitalization)
  Sender: FDA-Public Use
  Company Number: US-PFIZER INC-2018321487

PATIENT
  Age: 56 Year
  Sex: Male
  Weight: 81.63 kg

DRUGS (11)
  1. BLINDED PF?04383119 [Suspect]
     Active Substance: TANEZUMAB
     Indication: BACK PAIN
     Dosage: UNK
  2. BLINDED PLACEBO [Suspect]
     Active Substance: INVESTIGATIONAL PRODUCT
     Indication: BACK PAIN
     Dosage: UNK
  3. BLINDED TRAMADOL HCL [Suspect]
     Active Substance: TRAMADOL HYDROCHLORIDE
     Indication: BACK PAIN
     Dosage: UNK
  4. TYLENOL [Suspect]
     Active Substance: ACETAMINOPHEN
     Indication: PAIN
     Dosage: 500 MG, AS NEEDED
     Route: 048
  5. BLINDED PLACEBO [Suspect]
     Active Substance: INVESTIGATIONAL PRODUCT
     Indication: BACK PAIN
     Dosage: UNK
  6. BLINDED TRAMADOL HCL [Suspect]
     Active Substance: TRAMADOL HYDROCHLORIDE
     Indication: BACK PAIN
     Dosage: UNK
  7. XANAX [Suspect]
     Active Substance: ALPRAZOLAM
     Indication: ANXIETY
     Dosage: QD
     Route: 048
     Dates: start: 20160831
  8. COREG [Suspect]
     Active Substance: CARVEDILOL
     Dosage: 12.5 MG, 2X/DAY GIVEN FOR EVERY BETA BLOCKER
     Route: 048
     Dates: start: 20170405, end: 20180119
  9. BLINDED PF?04383119 [Suspect]
     Active Substance: TANEZUMAB
     Indication: BACK PAIN
     Dosage: UNK
  10. GABAPENTIN. [Suspect]
     Active Substance: GABAPENTIN
     Indication: PAIN
     Dosage: 800 MG, 3X/DAY
     Route: 048
     Dates: start: 20161128
  11. BLINDED PLACEBO [Suspect]
     Active Substance: INVESTIGATIONAL PRODUCT
     Indication: BACK PAIN
     Dosage: UNK

REACTIONS (1)
  - Aortic aneurysm [Recovered/Resolved]

NARRATIVE: CASE EVENT DATE: 20170403
